FAERS Safety Report 9397867 (Version 2)
Quarter: 2013Q3

REPORT INFORMATION
  Report Type: Spontaneous
  Country: JP (occurrence: JP)
  Receive Date: 20130712
  Receipt Date: 20130731
  Transmission Date: 20140515
  Serious: Yes (Hospitalization)
  Sender: FDA-Public Use
  Company Number: JP-JNJFOC-20130703619

PATIENT
  Age: 82 Year
  Sex: Female
  Weight: 50 kg

DRUGS (9)
  1. XARELTO [Suspect]
     Indication: ATRIAL FIBRILLATION
     Route: 048
     Dates: start: 20130402, end: 20130628
  2. XARELTO [Suspect]
     Indication: CEREBROVASCULAR ACCIDENT PROPHYLAXIS
     Route: 048
     Dates: start: 20130402, end: 20130628
  3. GASMOTIN [Concomitant]
     Route: 048
     Dates: end: 20130628
  4. TERNELIN [Concomitant]
     Route: 048
     Dates: start: 20100107, end: 20130628
  5. CONIEL [Concomitant]
     Route: 048
     Dates: start: 20130528, end: 20130628
  6. PRONON [Concomitant]
     Route: 048
     Dates: start: 20100413, end: 20130628
  7. CELECOXIB [Concomitant]
     Route: 048
     Dates: start: 20090717, end: 20130628
  8. CEROCRAL [Concomitant]
     Route: 048
     Dates: end: 20130628
  9. TAKEPRON [Concomitant]
     Route: 048
     Dates: start: 20100831, end: 20130628

REACTIONS (1)
  - Cerebral infarction [Not Recovered/Not Resolved]
